FAERS Safety Report 12349817 (Version 1)
Quarter: 2016Q2

REPORT INFORMATION
  Report Type: Spontaneous
  Country: US (occurrence: None)
  Receive Date: 20160509
  Receipt Date: 20160509
  Transmission Date: 20160815
  Serious: Yes (Hospitalization)
  Sender: FDA-Public Use
  Company Number: None

PATIENT
  Age: 57 Year
  Sex: Female
  Weight: 106.2 kg

DRUGS (4)
  1. MERCAPTOPURINE. [Suspect]
     Active Substance: MERCAPTOPURINE
     Dosage: DOSE VARIED FROM 3/10/16 TO 5/5/2016
     Dates: end: 20160505
  2. METHOTREXATE [Suspect]
     Active Substance: METHOTREXATE
     Dates: end: 20160428
  3. PREDNISONE. [Suspect]
     Active Substance: PREDNISONE
     Dates: end: 20160314
  4. VINCRISTINE SULFATE. [Suspect]
     Active Substance: VINCRISTINE SULFATE
     Dates: end: 20160310

REACTIONS (2)
  - Chest pain [None]
  - Flank pain [None]

NARRATIVE: CASE EVENT DATE: 20160505
